FAERS Safety Report 11873494 (Version 3)
Quarter: 2016Q1

REPORT INFORMATION
  Report Type: Spontaneous
  Country: US (occurrence: US)
  Receive Date: 20151228
  Receipt Date: 20160310
  Transmission Date: 20160526
  Serious: Yes (Other)
  Sender: FDA-Public Use
  Company Number: US-CELGENEUS-USA-2015124702

PATIENT
  Sex: Male
  Weight: 81.72 kg

DRUGS (3)
  1. POMALYST [Suspect]
     Active Substance: POMALIDOMIDE
     Indication: PLASMA CELL MYELOMA
     Route: 048
     Dates: start: 201310
  2. POMALYST [Suspect]
     Active Substance: POMALIDOMIDE
     Route: 048
     Dates: start: 201512
  3. POMALYST [Suspect]
     Active Substance: POMALIDOMIDE
     Route: 048
     Dates: start: 201410

REACTIONS (6)
  - Full blood count decreased [Recovered/Resolved]
  - Peripheral swelling [Unknown]
  - Skin exfoliation [Unknown]
  - Anaemia [Unknown]
  - Dizziness [Unknown]
  - Muscle spasms [Unknown]

NARRATIVE: CASE EVENT DATE: 2015
